FAERS Safety Report 6702236-3 (Version None)
Quarter: 2010Q2

REPORT INFORMATION
  Report Type: 
  Country: None (occurrence: None)
  Receive Date: 20100429
  Receipt Date: 20100421
  Transmission Date: 20101027
  Serious: Yes (Hospitalization)
  Sender: FDA-Public Use
  Company Number: DE-ABBOTT-10P-062-0639727-00

PATIENT
  Sex: Male
  Weight: 62 kg

DRUGS (7)
  1. HUMIRA [Suspect]
     Indication: ANKYLOSING SPONDYLITIS
     Route: 058
     Dates: start: 20090928, end: 20100301
  2. ACLASTA [Concomitant]
     Indication: OSTEOPOROSIS
     Dosage: PER P. A.
     Route: 042
     Dates: start: 20090709
  3. ISOZID [Concomitant]
     Indication: LATENT TUBERCULOSIS
     Dosage: PER DAY, EVENING
  4. DELIX 5 PLUS [Concomitant]
     Indication: DRUG USE FOR UNKNOWN INDICATION
     Dosage: ONCE PER DAY IN THE MORNING
  5. NEBIVOLOL 5 [Concomitant]
     Indication: DRUG USE FOR UNKNOWN INDICATION
     Dosage: 1/2 TABLET IN THE MORNING
  6. CALCIMAGON D3 [Concomitant]
     Indication: DRUG USE FOR UNKNOWN INDICATION
     Dosage: ONCE PER DAY, NOON TIME
  7. PANTOZOL [Concomitant]
     Indication: DRUG USE FOR UNKNOWN INDICATION
     Dosage: ONCE PER DAY, EVENING

REACTIONS (5)
  - COLON CANCER [None]
  - DECREASED APPETITE [None]
  - HIATUS HERNIA [None]
  - LYMPHANGIOMA [None]
  - WEIGHT DECREASED [None]
